FAERS Safety Report 7391959-1 (Version None)
Quarter: 2011Q2

REPORT INFORMATION
  Report Type: 
  Country: None (occurrence: None)
  Receive Date: 20110404
  Receipt Date: 20110325
  Transmission Date: 20111010
  Serious: Yes (Other)
  Sender: FDA-Public Use
  Company Number: US-BAXTER-2011BH007936

PATIENT
  Sex: Male

DRUGS (2)
  1. FLUCONAZOLE [Suspect]
     Indication: PERITONITIS BACTERIAL
     Route: 048
  2. CEFAZOLIN [Suspect]
     Indication: PERITONITIS BACTERIAL
     Route: 033

REACTIONS (2)
  - STAPHYLOCOCCAL OSTEOMYELITIS [None]
  - OSTEOMYELITIS BACTERIAL [None]
